FAERS Safety Report 8927780 (Version 1)
Quarter: 2012Q4

REPORT INFORMATION
  Report Type: 
  Country: US (occurrence: US)
  Receive Date: 20121127
  Receipt Date: 20121127
  Transmission Date: 20130627
  Serious: Yes (Hospitalization)
  Sender: FDA-Public Use
  Company Number: US-BAYER-2012-123929

PATIENT
  Age: 17 Year
  Sex: Female
  Weight: 73.47 kg

DRUGS (6)
  1. YAZ [Suspect]
     Dosage: UNK
     Dates: start: 201203
  2. BACTRIM [Concomitant]
     Indication: PNEUMONIA
  3. ROCEPHIN [Concomitant]
     Indication: PNEUMONIA
     Route: 030
  4. STEROIDS [Concomitant]
     Indication: PNEUMONIA
  5. ANTIBIOTICS [Concomitant]
     Indication: PNEUMONIA
  6. IMPLANON [Concomitant]

REACTIONS (1)
  - Pulmonary embolism [None]
